FAERS Safety Report 5762667-5 (Version None)
Quarter: 2008Q2

REPORT INFORMATION
  Report Type: 
  Country: None (occurrence: None)
  Receive Date: 20080609
  Receipt Date: 20080530
  Transmission Date: 20081010
  Serious: Yes (Death, Hospitalization)
  Sender: FDA-Public Use
  Company Number: IT-AMGEN-UK278191

PATIENT
  Sex: Female

DRUGS (7)
  1. AMG 706 - BLINDED [Suspect]
     Indication: NON-SMALL CELL LUNG CANCER
     Route: 048
     Dates: start: 20080211, end: 20080423
  2. ARANESP [Suspect]
     Indication: ANAEMIA OF MALIGNANT DISEASE
     Route: 058
     Dates: start: 20080303
  3. CARBOPLATIN [Suspect]
     Route: 042
     Dates: start: 20080211, end: 20080325
  4. PACLITAXEL [Suspect]
     Route: 042
     Dates: start: 20080211, end: 20080325
  5. TRANSTEC [Concomitant]
  6. LANSOPRAZOLE [Concomitant]
  7. PREDNISONE TAB [Concomitant]

REACTIONS (4)
  - ACUTE RESPIRATORY FAILURE [None]
  - DYSPNOEA [None]
  - GENERAL PHYSICAL HEALTH DETERIORATION [None]
  - PULMONARY EMBOLISM [None]
